FAERS Safety Report 17023220 (Version 1)
Quarter: 2019Q4

REPORT INFORMATION
  Report Type: Report from Study
  Country: US (occurrence: US)
  Receive Date: 20191112
  Receipt Date: 20191112
  Transmission Date: 20200122
  Serious: Yes (Hospitalization)
  Sender: FDA-Public Use
  Company Number: NVSC2019US030549

PATIENT
  Age: 21 Year
  Sex: Male
  Weight: 51.05 kg

DRUGS (26)
  1. TOBRAMYCIN. [Suspect]
     Active Substance: TOBRAMYCIN
     Indication: PRODUCT USED FOR UNKNOWN INDICATION
     Dosage: UNK
     Route: 055
     Dates: start: 20191001
  2. SODIUM CHLORIDE. [Concomitant]
     Active Substance: SODIUM CHLORIDE
     Dosage: 100 MILLILITER, 2X
     Route: 042
     Dates: start: 20190819, end: 20190819
  3. ACETAMINOPHEN. [Concomitant]
     Active Substance: ACETAMINOPHEN
     Indication: ARTHROPATHY
     Dosage: 650 MILLIGRAM, 4X
     Route: 048
     Dates: start: 20190817, end: 20190817
  4. ACETAMINOPHEN. [Concomitant]
     Active Substance: ACETAMINOPHEN
     Dosage: 650 MILLIGRAM, QD
     Route: 048
     Dates: start: 20190818, end: 20190818
  5. GLUCOSE [Concomitant]
     Active Substance: DEXTROSE
     Indication: CYSTIC FIBROSIS RELATED DIABETES
     Dosage: 50 MILLILITER, QD
     Route: 042
     Dates: start: 20190817
  6. IBUPROFEN. [Concomitant]
     Active Substance: IBUPROFEN
     Dosage: 400 MILLIGRAM, BID
     Route: 048
     Dates: start: 20190818, end: 20190818
  7. FLONASE [Concomitant]
     Active Substance: FLUTICASONE PROPIONATE
     Indication: CYSTIC FIBROSIS LUNG
     Dosage: 2.5 SPRAY, QD
     Route: 045
  8. SODIUM CHLORIDE. [Concomitant]
     Active Substance: SODIUM CHLORIDE
     Indication: INFECTIVE PULMONARY EXACERBATION OF CYSTIC FIBROSIS
     Dosage: 100 MILLILITER, 2X
     Route: 042
     Dates: start: 20190816, end: 20190916
  9. SODIUM CHLORIDE. [Concomitant]
     Active Substance: SODIUM CHLORIDE
     Dosage: 100 MILLILITER, QID
     Route: 042
     Dates: start: 20190817, end: 20190818
  10. MEROPENEM. [Concomitant]
     Active Substance: MEROPENEM
     Dosage: 2000 MILLIGRAM, TID
     Route: 042
     Dates: start: 20190816, end: 20190818
  11. ACETAMINOPHEN. [Concomitant]
     Active Substance: ACETAMINOPHEN
     Indication: PAIN
     Dosage: 650 MILLIGRAM, QD
     Route: 048
     Dates: start: 20190816, end: 20190818
  12. DORNASE ALFA. [Concomitant]
     Active Substance: DORNASE ALFA
     Indication: CYSTIC FIBROSIS LUNG
     Dosage: 2.5 MILLILITER, QD
     Route: 065
     Dates: start: 20020524
  13. IBUPROFEN. [Concomitant]
     Active Substance: IBUPROFEN
     Indication: PAIN
     Dosage: 600 MILLIGRAM, QD
     Route: 048
     Dates: start: 20190816, end: 20190818
  14. PROCHLORPERAZINE. [Concomitant]
     Active Substance: PROCHLORPERAZINE
     Indication: ANTIEMETIC SUPPORTIVE CARE
     Dosage: 10 MILLIGRAM, QD
     Route: 042
     Dates: start: 20190816, end: 20190816
  15. FENTANYL. [Concomitant]
     Active Substance: FENTANYL
     Indication: PAIN
     Dosage: 25-50 MICROGRAM, PRN
     Route: 042
     Dates: start: 20190816, end: 20190816
  16. MEROPENEM. [Concomitant]
     Active Substance: MEROPENEM
     Indication: INFECTIVE PULMONARY EXACERBATION OF CYSTIC FIBROSIS
     Dosage: 2000 MILLIGRAM, BID
     Route: 042
     Dates: start: 20190814, end: 20190819
  17. MIDAZOLAM [Concomitant]
     Active Substance: MIDAZOLAM HYDROCHLORIDE
     Indication: INFECTIVE PULMONARY EXACERBATION OF CYSTIC FIBROSIS
     Dosage: 0.5-1 MILLIGRAM, PRN
     Route: 042
     Dates: start: 20190816, end: 20190816
  18. ONDANSETRON [Concomitant]
     Active Substance: ONDANSETRON
     Indication: NAUSEA
     Dosage: 4 MILLIGRAM, PRN
     Route: 048
     Dates: start: 20190814, end: 20190818
  19. DOXYCYCLINE. [Concomitant]
     Active Substance: DOXYCYCLINE
     Indication: INFECTIVE PULMONARY EXACERBATION OF CYSTIC FIBROSIS
     Dosage: 100 MILLIGRAM, QD
     Route: 048
     Dates: start: 20190816, end: 20190817
  20. DOXYCYCLINE. [Concomitant]
     Active Substance: DOXYCYCLINE
     Dosage: 100 MILLIGRAM, BID
     Route: 048
     Dates: start: 20190817, end: 20190817
  21. MEROPENEM. [Concomitant]
     Active Substance: MEROPENEM
     Dosage: 2000 MILLIGRAM, 2X
     Route: 042
     Dates: start: 20190819, end: 20190819
  22. ALBUTEROL. [Concomitant]
     Active Substance: ALBUTEROL
     Indication: CYSTIC FIBROSIS LUNG
     Dosage: 2 PUFFS QD
     Route: 065
     Dates: start: 20150929
  23. PERTZYE [Concomitant]
     Active Substance: PANCRELIPASE AMYLASE\PANCRELIPASE LIPASE\PANCRELIPASE PROTEASE
     Indication: PANCREATIC FAILURE
     Dosage: 8 DOSAGE FORM (5 CAP WITH MEALS AND 3 CAP WITH SNACKS)
     Route: 065
     Dates: start: 20190627
  24. HYDROMORPHONE [Concomitant]
     Active Substance: HYDROMORPHONE
     Indication: PAIN
     Dosage: 1 MILLIGRAM, 2X
     Route: 042
     Dates: start: 20190816, end: 20190817
  25. TOBRAMYCIN. [Concomitant]
     Active Substance: TOBRAMYCIN
     Indication: INFECTIVE PULMONARY EXACERBATION OF CYSTIC FIBROSIS
     Dosage: 500 MILLIGRAM, QD
     Route: 042
     Dates: start: 20190814, end: 20190818
  26. INSULIN [Concomitant]
     Active Substance: INSULIN NOS
     Indication: CYSTIC FIBROSIS RELATED DIABETES
     Dosage: 2 MILLILITER, PRN
     Route: 065
     Dates: start: 20161008

REACTIONS (1)
  - Infective pulmonary exacerbation of cystic fibrosis [Recovered/Resolved]

NARRATIVE: CASE EVENT DATE: 20190812
